FAERS Safety Report 14317379 (Version 1)
Quarter: 2017Q4

REPORT INFORMATION
  Report Type: Report from Study
  Country: None (occurrence: US)
  Receive Date: 20171222
  Receipt Date: 20171222
  Transmission Date: 20180321
  Serious: Yes (Hospitalization)
  Sender: FDA-Public Use
  Company Number: US-ABBVIE-17K-163-2201030-00

PATIENT
  Sex: Female

DRUGS (1)
  1. HUMIRA [Suspect]
     Active Substance: ADALIMUMAB
     Indication: RHEUMATOID ARTHRITIS
     Route: 058
     Dates: start: 201706

REACTIONS (4)
  - Arthralgia [Unknown]
  - Colitis [Unknown]
  - Irritable bowel syndrome [Unknown]
  - Food poisoning [Unknown]

NARRATIVE: CASE EVENT DATE: 2017
